FAERS Safety Report 9013995 (Version 1)
Quarter: 2013Q1

REPORT INFORMATION
  Report Type: Spontaneous
  Country: US (occurrence: None)
  Receive Date: 20130109
  Receipt Date: 20130109
  Transmission Date: 20140127
  Serious: Yes (Hospitalization, Disabling, Other)
  Sender: FDA-Public Use
  Company Number: None

PATIENT
  Age: 46 Year
  Sex: Male
  Weight: 77.3 kg

DRUGS (2)
  1. PROPECIA 1 MG MERCK [Suspect]
     Indication: ALOPECIA
     Dosage: PROPECIA 1 MG DAILY ORALLY
     Route: 048
     Dates: start: 20070217
  2. PROPECIA [Suspect]
     Dates: start: 20120815

REACTIONS (12)
  - Erectile dysfunction [None]
  - Anxiety [None]
  - Panic attack [None]
  - Phobia [None]
  - Depression [None]
  - Affective disorder [None]
  - Social avoidant behaviour [None]
  - Sleep disorder [None]
  - Headache [None]
  - Apathy [None]
  - Irritability [None]
  - Disturbance in attention [None]
